FAERS Safety Report 23358800 (Version 1)
Quarter: 2024Q1

REPORT INFORMATION
  Report Type: Spontaneous
  Country: AU (occurrence: AU)
  Receive Date: 20240102
  Receipt Date: 20240102
  Transmission Date: 20240409
  Serious: Yes (Other)
  Sender: FDA-Public Use
  Company Number: AU-PFIZER INC-PV202300206400

PATIENT
  Age: 65 Year
  Sex: Male

DRUGS (16)
  1. METHOTREXATE SODIUM [Suspect]
     Active Substance: METHOTREXATE SODIUM
     Indication: Lymphoma
     Dosage: 3 X MATRIX REGIMEN
     Dates: start: 2023
  2. METHOTREXATE SODIUM [Suspect]
     Active Substance: METHOTREXATE SODIUM
     Indication: Central nervous system lymphoma
  3. METHOTREXATE SODIUM [Suspect]
     Active Substance: METHOTREXATE SODIUM
     Indication: Disease recurrence
  4. CYTARABINE [Suspect]
     Active Substance: CYTARABINE
     Indication: Lymphoma
     Dosage: 3 X MATRIX REGIMEN
     Dates: start: 2023
  5. CYTARABINE [Suspect]
     Active Substance: CYTARABINE
     Indication: Central nervous system lymphoma
  6. CYTARABINE [Suspect]
     Active Substance: CYTARABINE
     Indication: Disease recurrence
  7. VINCRISTINE SULFATE [Suspect]
     Active Substance: VINCRISTINE SULFATE
     Indication: Lymphoma
     Dosage: R-CHOP REGIMEN
     Dates: start: 2021
  8. CYCLOPHOSPHAMIDE [Suspect]
     Active Substance: CYCLOPHOSPHAMIDE
     Indication: Lymphoma
     Dosage: R-CHOP REGIMEN
     Dates: start: 2021
  9. DOXORUBICIN HYDROCHLORIDE [Suspect]
     Active Substance: DOXORUBICIN HYDROCHLORIDE
     Indication: Lymphoma
     Dosage: R-CHOP REGIMEN
     Dates: start: 2021
  10. PREDNISOLONE [Suspect]
     Active Substance: PREDNISOLONE
     Indication: Lymphoma
     Dosage: R-CHOP REGIMEN
     Dates: start: 2021
  11. RITUXIMAB [Suspect]
     Active Substance: RITUXIMAB
     Indication: Lymphoma
     Dosage: R-CHOP REGIMEN
     Dates: start: 2021
  12. RITUXIMAB [Suspect]
     Active Substance: RITUXIMAB
     Indication: Central nervous system lymphoma
     Dosage: 3 X MATRIX REGIMEN
     Dates: start: 2023
  13. RITUXIMAB [Suspect]
     Active Substance: RITUXIMAB
     Indication: Disease recurrence
  14. THIOTEPA [Suspect]
     Active Substance: THIOTEPA
     Indication: Lymphoma
     Dosage: 3 X MATRIX REGIMEN
     Dates: start: 2023
  15. THIOTEPA [Suspect]
     Active Substance: THIOTEPA
     Indication: Central nervous system lymphoma
  16. THIOTEPA [Suspect]
     Active Substance: THIOTEPA
     Indication: Disease recurrence

REACTIONS (5)
  - Central nervous system lymphoma [Unknown]
  - Refractory cancer [Unknown]
  - Lymphoma [Unknown]
  - Neoplasm progression [Unknown]
  - Neoplasm recurrence [Unknown]

NARRATIVE: CASE EVENT DATE: 20230101
